FAERS Safety Report 12802305 (Version 3)
Quarter: 2022Q2

REPORT INFORMATION
  Report Type: Report from Study
  Country: US (occurrence: US)
  Receive Date: 20161003
  Receipt Date: 20220419
  Transmission Date: 20220720
  Serious: Yes (Other)
  Sender: FDA-Public Use
  Company Number: US-JAZZ-2016-US-012139

PATIENT
  Sex: Female
  Weight: 41.63 kg

DRUGS (25)
  1. XYREM [Suspect]
     Active Substance: SODIUM OXYBATE
     Indication: Fibromyalgia
     Dosage: 4.5 GRAM, BID
     Route: 048
     Dates: start: 201207
  2. XYREM [Suspect]
     Active Substance: SODIUM OXYBATE
     Indication: Insomnia
  3. CREON [Concomitant]
     Active Substance: PANCRELIPASE AMYLASE\PANCRELIPASE LIPASE\PANCRELIPASE PROTEASE
  4. ESTRADIOL TRANSDERMAL SYSTEM [Concomitant]
     Active Substance: ESTRADIOL
     Indication: Hormone replacement therapy
  5. LUNESTA [Concomitant]
     Active Substance: ESZOPICLONE
     Indication: Sleep disorder
     Dosage: UNK
     Dates: start: 2007
  6. TESTOSTERONE [Concomitant]
     Active Substance: TESTOSTERONE
  7. HYDROCORTISONE [Concomitant]
     Active Substance: HYDROCORTISONE
  8. LOTEMAX [Concomitant]
     Active Substance: LOTEPREDNOL ETABONATE
  9. CLONAZEPAM [Concomitant]
     Active Substance: CLONAZEPAM
  10. AMBIEN CR [Concomitant]
     Active Substance: ZOLPIDEM TARTRATE
     Indication: Sleep disorder
  11. ERGOCALCIFEROL [Concomitant]
     Active Substance: ERGOCALCIFEROL
  12. TRAVATAN Z [Concomitant]
     Active Substance: TRAVOPROST
  13. VALERIAN [Concomitant]
     Active Substance: VALERIAN
  14. VANIQA [EFLORNITHINE HYDROCHLORIDE] [Concomitant]
  15. ESTRACE [Concomitant]
     Active Substance: ESTRADIOL
     Indication: Hormone replacement therapy
  16. SPIRONOLACTONE [Concomitant]
     Active Substance: SPIRONOLACTONE
  17. NYSTATIN [Concomitant]
     Active Substance: NYSTATIN
  18. VIVELLE-DOT [Concomitant]
     Active Substance: ESTRADIOL
  19. ARMOUR THYROID [Concomitant]
     Active Substance: THYROID, PORCINE
  20. DIFLUCAN [Concomitant]
     Active Substance: FLUCONAZOLE
  21. KLONOPIN [Concomitant]
     Active Substance: CLONAZEPAM
  22. NORCO [Concomitant]
     Active Substance: ACETAMINOPHEN\HYDROCODONE BITARTRATE
  23. VALIUM [Concomitant]
     Active Substance: DIAZEPAM
  24. PROGESTERONE [Concomitant]
     Active Substance: PROGESTERONE
  25. MELATONIN [Concomitant]
     Active Substance: MELATONIN

REACTIONS (3)
  - Pancreatic failure [Not Recovered/Not Resolved]
  - Pancreatic enzymes decreased [Not Recovered/Not Resolved]
  - Weight decreased [Unknown]

NARRATIVE: CASE EVENT DATE: 20160101
